FAERS Safety Report 14147730 (Version 1)
Quarter: 2017Q4

REPORT INFORMATION
  Report Type: Report from Study
  Country: US (occurrence: US)
  Receive Date: 20171031
  Receipt Date: 20171031
  Transmission Date: 20180321
  Serious: Yes (Disabling, Other)
  Sender: FDA-Public Use
  Company Number: PHEH2017US034793

PATIENT
  Sex: Male

DRUGS (1)
  1. ENTRESTO [Suspect]
     Active Substance: SACUBITRIL\VALSARTAN
     Indication: PRODUCT USED FOR UNKNOWN INDICATION
     Route: 065

REACTIONS (6)
  - HIV infection [Unknown]
  - Diabetes mellitus [Unknown]
  - Cardiac disorder [Unknown]
  - Hepatitis C [Recovered/Resolved]
  - Dyspnoea [Unknown]
  - Dizziness [Unknown]
